FAERS Safety Report 8699319 (Version 5)
Quarter: 2013Q2

REPORT INFORMATION
  Report Type: Report from Study
  Country: DE (occurrence: DE)
  Receive Date: 20120802
  Receipt Date: 20130527
  Transmission Date: 20140414
  Serious: Yes (Death, Hospitalization, Disabling, Other)
  Sender: FDA-Public Use
  Company Number: DE-ROCHE-1094281

PATIENT
  Age: 69 Year
  Sex: Male
  Weight: 73 kg

DRUGS (7)
  1. RITUXIMAB [Suspect]
     Indication: CHRONIC LYMPHOCYTIC LEUKAEMIA
     Route: 042
     Dates: start: 20111121, end: 20120511
  2. FLUDARABINE [Suspect]
     Indication: CHRONIC LYMPHOCYTIC LEUKAEMIA
     Route: 042
     Dates: start: 20111121, end: 20120511
  3. CYCLOPHOSPHAMID [Suspect]
     Indication: CHRONIC LYMPHOCYTIC LEUKAEMIA
     Route: 042
     Dates: start: 20111121, end: 20120511
  4. MESNA [Concomitant]
     Route: 042
     Dates: start: 20111121, end: 20120511
  5. CLEMASTIN [Concomitant]
     Route: 042
     Dates: start: 20111121, end: 20120511
  6. RANITIDIN [Concomitant]
     Dosage: 1 AMP.
     Route: 042
     Dates: start: 20111121, end: 20120511
  7. ONDANSETRON [Concomitant]
     Indication: PROPHYLAXIS OF NAUSEA AND VOMITING
     Route: 065
     Dates: start: 20111121, end: 20120511

REACTIONS (5)
  - Progressive multifocal leukoencephalopathy [Fatal]
  - Cough [Unknown]
  - Infection [Unknown]
  - Hemiparesis [Not Recovered/Not Resolved]
  - Epididymitis [Unknown]
